FAERS Safety Report 18056861 (Version 1)
Quarter: 2020Q3

REPORT INFORMATION
  Report Type: Spontaneous
  Country: JP (occurrence: JP)
  Receive Date: 20200723
  Receipt Date: 20200723
  Transmission Date: 20201103
  Serious: Yes (Death, Other)
  Sender: FDA-Public Use
  Company Number: JP-AMGEN-JPNCT2017113369

PATIENT
  Age: 40 Year
  Sex: Male
  Weight: 65 kg

DRUGS (22)
  1. VANCOMYCIN [Suspect]
     Active Substance: VANCOMYCIN
     Dosage: 2.5 GRAM
     Route: 042
     Dates: start: 20131028
  2. HYDROCORTONE [Suspect]
     Active Substance: HYDROCORTISONE
     Dosage: 50 MILLIGRAM
     Route: 041
     Dates: start: 20131009, end: 20131105
  3. GLYCEOL [Suspect]
     Active Substance: GLYCERIN
     Indication: BRAIN OEDEMA
     Dosage: 200 MILLILITER, QD
     Route: 041
     Dates: start: 20131030, end: 20131109
  4. FENTANYL CITRATE. [Concomitant]
     Active Substance: FENTANYL CITRATE
     Indication: SEDATIVE THERAPY
     Dosage: 1 MILLIGRAM, QD
     Route: 042
     Dates: start: 20131027, end: 20131102
  5. INOTUZUMAB OZOGAMICIN [Suspect]
     Active Substance: INOTUZUMAB OZOGAMICIN
     Indication: ACUTE LYMPHOCYTIC LEUKAEMIA
     Dosage: 1.42 MG, WEEKLY IN 3?4 WEEK CYCLES
     Route: 042
     Dates: start: 20131022, end: 20131028
  6. MEROPEN [Suspect]
     Active Substance: MEROPENEM
     Indication: NEUTROPENIC SEPSIS
     Dosage: 3 GRAM
     Route: 041
     Dates: start: 20131027
  7. BFLUID [Concomitant]
     Active Substance: AMINO ACIDS\DEXTROSE\ELECTROLYTES NOS\VITAMINS
     Indication: FLUID REPLACEMENT
     Dosage: 500 MILLILITER, PRN
     Route: 041
     Dates: start: 20131102, end: 20131106
  8. PHYSIO 70 [Concomitant]
     Indication: FLUID REPLACEMENT
     Dosage: 500 ML, PRN
     Route: 041
     Dates: start: 20131102, end: 20131106
  9. TAKEPRON [Suspect]
     Active Substance: LANSOPRAZOLE
     Indication: PROPHYLAXIS AGAINST GASTROINTESTINAL ULCER
     Dosage: 30 MG, UNK
     Route: 041
     Dates: start: 20131027, end: 20131108
  10. MEROPEN [Suspect]
     Active Substance: MEROPENEM
     Dosage: 1 GRAM
     Route: 041
     Dates: end: 20131108
  11. MEROPEN [Suspect]
     Active Substance: MEROPENEM
     Dosage: 2 GRAM
     Route: 041
     Dates: start: 20131028
  12. VANCOMYCIN [Suspect]
     Active Substance: VANCOMYCIN
     Indication: NEUTROPENIC SEPSIS
     Dosage: 2 GRAM
     Route: 042
     Dates: start: 20131027
  13. HYDROCORTONE [Suspect]
     Active Substance: HYDROCORTISONE
     Indication: PYREXIA
     Dosage: 200 MILLIGRAM
     Route: 041
     Dates: start: 20131027
  14. LACTEC [Concomitant]
     Active Substance: CALCIUM CHLORIDE ANHYDROUS\POTASSIUM CHLORIDE\SODIUM CHLORIDE\SODIUM LACTATE
     Indication: FLUID REPLACEMENT
     Dosage: 500 MILLILITER, PRN
     Route: 041
     Dates: start: 20131027, end: 20131109
  15. HUMULIN R [Suspect]
     Active Substance: INSULIN HUMAN
     Indication: HYPERGLYCAEMIA
     Dosage: 50 INTERNATIONAL UNIT, PRN
     Route: 041
     Dates: start: 20131102, end: 20131109
  16. HYDROCORTONE [Suspect]
     Active Substance: HYDROCORTISONE
     Dosage: 150 MILLIGRAM
     Route: 041
     Dates: start: 20131030
  17. NICARDIPINE HYDROCHLORIDE. [Suspect]
     Active Substance: NICARDIPINE HYDROCHLORIDE
     Indication: HYPERTENSION
     Dosage: 30 MILLIGRAM,, PRN
     Route: 041
     Dates: start: 20131103, end: 20131109
  18. VANCOMYCIN [Suspect]
     Active Substance: VANCOMYCIN
     Dosage: 2 GRAM
     Route: 042
     Dates: start: 20131030
  19. CHLORPHENAMINE MALEATE [Suspect]
     Active Substance: CHLORPHENIRAMINE MALEATE
     Indication: ALLERGY PROPHYLAXIS
     Dosage: 10 MILLIGRAM, QD
     Route: 065
     Dates: start: 20131027, end: 20131107
  20. GRAN [Suspect]
     Active Substance: FILGRASTIM
     Indication: NEUTROPENIA
     Dosage: 75 MUG, QD
     Route: 058
     Dates: start: 20131025, end: 20131108
  21. VANCOMYCIN [Suspect]
     Active Substance: VANCOMYCIN
     Dosage: 1.5 GRAM, QD
     Route: 042
     Dates: start: 20131031, end: 20131109
  22. HYDROCORTONE [Suspect]
     Active Substance: HYDROCORTISONE
     Dosage: 100 MILLIGRAM
     Route: 041
     Dates: start: 20131102

REACTIONS (5)
  - Brain abscess [Not Recovered/Not Resolved]
  - Neutropenic sepsis [Fatal]
  - Venoocclusive liver disease [Not Recovered/Not Resolved]
  - Multiple organ dysfunction syndrome [Not Recovered/Not Resolved]
  - Septic embolus [Not Recovered/Not Resolved]

NARRATIVE: CASE EVENT DATE: 20131025
